FAERS Safety Report 6592471-X (Version None)
Quarter: 2010Q1

REPORT INFORMATION
  Report Type: 
  Country: None (occurrence: None)
  Receive Date: 20100221
  Receipt Date: 20091020
  Transmission Date: 20100710
  Serious: No
  Sender: FDA-Public Use
  Company Number: US-ALLERGAN-0914289US

PATIENT
  Sex: Female

DRUGS (4)
  1. BOTOX COSMETIC [Suspect]
     Indication: SKIN WRINKLING
     Dosage: UNK
     Route: 030
     Dates: start: 20091006, end: 20091006
  2. BOTOX COSMETIC [Suspect]
     Dosage: 3-4 TIMES
     Route: 030
  3. PENICILLIN [Concomitant]
     Indication: ENDODONTIC PROCEDURE
     Dosage: UNK
     Dates: start: 20090923
  4. IBUPROFEN [Concomitant]
     Indication: BACK PAIN
     Dosage: 600 MG, UNK

REACTIONS (5)
  - DIZZINESS [None]
  - HEADACHE [None]
  - NAUSEA [None]
  - SEROMA [None]
  - THERAPEUTIC RESPONSE DECREASED [None]
